FAERS Safety Report 18423722 (Version 2)
Quarter: 2020Q4

REPORT INFORMATION
  Report Type: Spontaneous
  Country: FR (occurrence: FR)
  Receive Date: 20201024
  Receipt Date: 20201121
  Transmission Date: 20210114
  Serious: Yes (Other)
  Sender: FDA-Public Use
  Company Number: NVSC2020FR281406

PATIENT
  Age: 85 Year
  Sex: Male

DRUGS (2)
  1. REVOLADE [Suspect]
     Active Substance: ELTROMBOPAG
     Dosage: 50 MG, QD
     Route: 065
  2. REVOLADE [Suspect]
     Active Substance: ELTROMBOPAG
     Indication: PLATELET COUNT DECREASED
     Dosage: 25 MG, QD
     Route: 065
     Dates: start: 202007

REACTIONS (12)
  - Blast cell crisis [Unknown]
  - Metamyelocyte count decreased [Unknown]
  - Platelet count decreased [Unknown]
  - Basophil count abnormal [Unknown]
  - Blast cell count increased [Unknown]
  - Band neutrophil percentage decreased [Unknown]
  - Monocyte percentage decreased [Unknown]
  - Eosinophil count abnormal [Unknown]
  - Lymphocyte percentage decreased [Unknown]
  - Myelocyte percentage decreased [Unknown]
  - Red blood cell count increased [Unknown]
  - Product use in unapproved indication [Unknown]
